FAERS Safety Report 9174744 (Version 2)
Quarter: 2013Q1

REPORT INFORMATION
  Report Type: Spontaneous
  Country: FR (occurrence: FR)
  Receive Date: 20130320
  Receipt Date: 20130326
  Transmission Date: 20140127
  Serious: Yes (Other)
  Sender: FDA-Public Use
  Company Number: FR-PFIZER INC-2013086969

PATIENT
  Age: 31 Year
  Sex: Female
  Weight: 71 kg

DRUGS (1)
  1. TRINORDIOL [Suspect]
     Indication: CONTRACEPTION
     Dosage: ETHINYL ESTRADIOL 30-40-30UG/ LEVONORGESTREL 50-75-125UG
     Dates: end: 2013

REACTIONS (1)
  - Phlebitis deep [Not Recovered/Not Resolved]
